FAERS Safety Report 5930783-0 (Version None)
Quarter: 2008Q4

REPORT INFORMATION
  Report Type: 
  Country: None (occurrence: None)
  Receive Date: 20081022
  Receipt Date: 20081006
  Transmission Date: 20090506
  Serious: No
  Sender: FDA-Public Use
  Company Number: SPV1-2008-01970

PATIENT
  Age: 10 Year
  Sex: Male

DRUGS (1)
  1. ELAPRASE [Suspect]
     Indication: MUCOPOLYSACCHARIDOSIS II
     Dosage: 15 MG, 1X/WEEK, IV DRIP
     Route: 041
     Dates: start: 20040210

REACTIONS (1)
  - CARPAL TUNNEL DECOMPRESSION [None]
